FAERS Safety Report 8953880 (Version 1)
Quarter: 2012Q4

REPORT INFORMATION
  Report Type: 
  Country: DE (occurrence: DE)
  Receive Date: 20121206
  Receipt Date: 20121206
  Transmission Date: 20130627
  Serious: Yes (Other)
  Sender: FDA-Public Use
  Company Number: DE-US-EMD SERONO, INC.-7179042

PATIENT
  Age: 33 Year
  Sex: Male

DRUGS (7)
  1. MITOXANTRONE [Suspect]
     Indication: ACUTE MYELOID LEUKAEMIA
     Dosage: MAC=2X1 g/m2 cytarabine d1-6+10 mg/m2 mitoxantrone d4-6 and MAMAC=2X1 g/m2 cytarabine d1-5+100 mg/m2
  2. MITOXANTRONE [Suspect]
  3. CYTARABINE [Suspect]
     Indication: ACUTE MYELOID LEUKAEMIA
     Dosage: 100mg/m2=200mg continuously
  4. CYTARABINE [Suspect]
     Dosage: MAC=2X1 g/m2 cytarabine d1-6+10 mg/m2 mitoxantrone d4-6 and MAMAC=2X1 g/m2 cytarabine d1-5+100 mg/m2
  5. CYTARABINE [Suspect]
  6. AMSACRINE [Suspect]
     Indication: ACUTE MYELOID LEUKAEMIA
     Dosage: MAC=2X1 g/m2 cytarabine d1-6+10 mg/m2 mitoxantrone d4-6 and MAMAC=2X1 g/m2 cytarabine d1-5+100 mg/m2
  7. FLUDARABINE [Suspect]
     Indication: LEUKAEMIA RECURRENT

REACTIONS (4)
  - Leukaemia recurrent [Recovered/Resolved]
  - Pulmonary mycosis [Unknown]
  - Staphylococcal infection [Unknown]
  - Lymphadenitis [Unknown]
